FAERS Safety Report 8800957 (Version 1)
Quarter: 2012Q4

REPORT INFORMATION
  Report Type: 
  Country: US (occurrence: US)
  Receive Date: 20120921
  Receipt Date: 20120921
  Transmission Date: 20130627
  Serious: Yes (Hospitalization)
  Sender: FDA-Public Use
  Company Number: US-ROXANE LABORATORIES, INC.-2012-RO-01862RO

PATIENT
  Age: 80 Year
  Sex: Male

DRUGS (8)
  1. DEXAMETHASONE [Suspect]
     Indication: MULTIPLE MYELOMA
     Route: 048
     Dates: start: 20100608, end: 20110907
  2. THALIDOMIDE [Suspect]
     Indication: MULTIPLE MYELOMA
     Dosage: 50 mg
     Route: 048
     Dates: start: 20100608, end: 20110707
  3. SAW PALMETTO [Concomitant]
  4. LANTUS [Concomitant]
  5. LISINOPRIL [Concomitant]
  6. PLAVIX [Concomitant]
  7. GAVISCON [Concomitant]
  8. SIMVASTATIN [Concomitant]

REACTIONS (5)
  - Asthenia [Unknown]
  - Fatigue [Unknown]
  - Weight decreased [Unknown]
  - Pain [Unknown]
  - Blood glucose abnormal [Unknown]
